FAERS Safety Report 12896980 (Version 1)
Quarter: 2016Q4

REPORT INFORMATION
  Report Type: Spontaneous
  Country: US (occurrence: US)
  Receive Date: 20161031
  Receipt Date: 20161031
  Transmission Date: 20170207
  Serious: No
  Sender: FDA-Public Use
  Company Number: US-PFIZER INC-2016503398

PATIENT
  Age: 52 Year

DRUGS (3)
  1. TETRACYCLINE HCL [Suspect]
     Active Substance: TETRACYCLINE HYDROCHLORIDE
     Dosage: UNK
  2. OXYTETRACYCLINE HCL [Suspect]
     Active Substance: OXYTETRACYCLINE HYDROCHLORIDE
     Dosage: UNK
  3. ETHYL CHLORIDE [Suspect]
     Active Substance: ETHYL CHLORIDE
     Dosage: UNK

REACTIONS (2)
  - Drug hypersensitivity [Unknown]
  - Rash [Unknown]
